FAERS Safety Report 10067560 (Version 3)
Quarter: 2014Q2

REPORT INFORMATION
  Report Type: Spontaneous
  Country: JP (occurrence: JP)
  Receive Date: 20140409
  Receipt Date: 20140527
  Transmission Date: 20141212
  Serious: Yes (Hospitalization)
  Sender: FDA-Public Use
  Company Number: JP-JNJFOC-20140400371

PATIENT
  Age: 7 Decade
  Sex: Male

DRUGS (10)
  1. XEPLION [Suspect]
     Indication: PRODUCT USED FOR UNKNOWN INDICATION
     Route: 030
  2. XEPLION [Suspect]
     Indication: PRODUCT USED FOR UNKNOWN INDICATION
     Route: 030
     Dates: start: 20140203, end: 20140203
  3. XEPLION [Suspect]
     Indication: SCHIZOPHRENIA
     Route: 030
  4. XEPLION [Suspect]
     Indication: SCHIZOPHRENIA
     Route: 030
     Dates: start: 20140203, end: 20140203
  5. NEOPERIDOL [Suspect]
     Indication: SCHIZOPHRENIA
     Route: 030
     Dates: end: 20140103
  6. NEOPERIDOL [Suspect]
     Indication: SCHIZOPHRENIA
     Route: 030
  7. MAJORPIN [Concomitant]
     Indication: SCHIZOPHRENIA
     Route: 048
     Dates: start: 20101007
  8. LEVOMEPROMAZINE MALEATE [Concomitant]
     Indication: SCHIZOPHRENIA
     Route: 048
     Dates: start: 20080529
  9. HIBERNA [Concomitant]
     Indication: SCHIZOPHRENIA
     Route: 048
     Dates: start: 20080614
  10. AKIRIDEN [Concomitant]
     Indication: SCHIZOPHRENIA
     Route: 048
     Dates: start: 20080529

REACTIONS (3)
  - Drug eruption [Recovered/Resolved]
  - Drug ineffective [Unknown]
  - Eczema [Unknown]
